FAERS Safety Report 9633073 (Version 1)
Quarter: 2013Q4

REPORT INFORMATION
  Report Type: Report from Study
  Country: DE (occurrence: DE)
  Receive Date: 20131018
  Receipt Date: 20131018
  Transmission Date: 20140711
  Serious: Yes (Death)
  Sender: FDA-Public Use
  Company Number: DE-B.I. PHARMACEUTICALS,INC./RIDGEFIELD-2013-BI-32563DE

PATIENT
  Age: 48 Year
  Sex: Male
  Weight: 80 kg

DRUGS (2)
  1. VIRAMUNE [Suspect]
     Indication: HIV INFECTION
     Dosage: 400 MG
     Route: 048
     Dates: start: 20110930, end: 20130825
  2. XIMOVAN [Concomitant]
     Indication: DEPRESSION
     Dosage: 7.5 MG
     Route: 048
     Dates: start: 20130223

REACTIONS (1)
  - Completed suicide [Fatal]
